FAERS Safety Report 8609083-6 (Version None)
Quarter: 2012Q3

REPORT INFORMATION
  Report Type: 
  Country: None (occurrence: None)
  Receive Date: 20120821
  Receipt Date: 20120807
  Transmission Date: 20120928
  Serious: No
  Sender: FDA-Public Use
  Company Number: US-ASTRAZENECA-2012SE55776

PATIENT
  Age: 48 Year
  Sex: Female
  Weight: 83.9 kg

DRUGS (1)
  1. SYMBICORT [Suspect]
     Indication: ASTHMA
     Dosage: 160/4.5 MCG, 1 PUFF BID
     Route: 055

REACTIONS (4)
  - SENSATION OF HEAVINESS [None]
  - DRUG INEFFECTIVE [None]
  - OFF LABEL USE [None]
  - DYSPNOEA [None]
